FAERS Safety Report 7689073-0 (Version None)
Quarter: 2011Q3

REPORT INFORMATION
  Report Type: 
  Country: None (occurrence: None)
  Receive Date: 20110817
  Receipt Date: 20110811
  Transmission Date: 20111222
  Serious: Yes (Hospitalization)
  Sender: FDA-Public Use
  Company Number: BR-MERCK-1108BRA00055

PATIENT
  Sex: Female
  Weight: 63 kg

DRUGS (4)
  1. ETHINYL ESTRADIOL AND NORETHINDRONE ACETATE [Concomitant]
     Indication: CONTRACEPTION
     Route: 048
     Dates: start: 20110601
  2. JANUMET [Suspect]
     Indication: DIABETES MELLITUS
     Route: 048
     Dates: start: 20100101, end: 20110101
  3. OMEPRAZOLE [Concomitant]
     Indication: ABDOMINAL PAIN UPPER
     Route: 048
     Dates: start: 20110101
  4. CIPROFLOXACIN [Concomitant]
     Indication: URINARY TRACT INFECTION
     Route: 048
     Dates: start: 20110805, end: 20110807

REACTIONS (3)
  - HEPATIC ENZYME ABNORMAL [None]
  - THROMBOSIS [None]
  - DIABETIC KETOACIDOSIS [None]
